FAERS Safety Report 15427387 (Version 2)
Quarter: 2018Q4

REPORT INFORMATION
  Report Type: Spontaneous
  Country: US (occurrence: US)
  Receive Date: 20180925
  Receipt Date: 20181102
  Transmission Date: 20190204
  Serious: No
  Sender: FDA-Public Use
  Company Number: US-SA-2018SA265635

PATIENT

DRUGS (1)
  1. FERRLECIT [Suspect]
     Active Substance: SODIUM FERRIC GLUCONATE COMPLEX
     Indication: PRODUCT USED FOR UNKNOWN INDICATION

REACTIONS (1)
  - Infusion site extravasation [Unknown]
